FAERS Safety Report 4970349-2 (Version None)
Quarter: 2006Q2

REPORT INFORMATION
  Report Type: 
  Country: None (occurrence: None)
  Receive Date: 20060412
  Receipt Date: 20060330
  Transmission Date: 20061013
  Serious: Yes (Other)
  Sender: FDA-Public Use
  Company Number: ES-AMGEN-UK174613

PATIENT
  Sex: Male

DRUGS (7)
  1. ARANESP [Suspect]
     Indication: RENAL FAILURE CHRONIC
     Route: 058
     Dates: start: 20041020, end: 20060301
  2. ATENOLOL [Concomitant]
     Route: 048
  3. ENALAPRIL MALEATE [Concomitant]
     Route: 048
  4. LERCANIDIPINE [Concomitant]
     Route: 048
  5. RENAGEL [Concomitant]
     Route: 048
  6. CALCIUM GLUCONATE [Concomitant]
     Route: 048
  7. BACTROBAN [Concomitant]
     Route: 045

REACTIONS (2)
  - APLASIA PURE RED CELL [None]
  - BONE MARROW FAILURE [None]
